FAERS Safety Report 20812574 (Version 2)
Quarter: 2022Q2

REPORT INFORMATION
  Report Type: Report from Study
  Country: JP (occurrence: JP)
  Receive Date: 20220511
  Receipt Date: 20220616
  Transmission Date: 20220721
  Serious: Yes (Other)
  Sender: FDA-Public Use
  Company Number: JP-AMGEN-JPNNI2022080778

PATIENT
  Age: 36 Year
  Sex: Female
  Weight: 72.3 kg

DRUGS (18)
  1. APREMILAST [Suspect]
     Active Substance: APREMILAST
     Indication: Mouth ulceration
     Dosage: 10 MILLIGRAM, QD
     Route: 065
     Dates: start: 20211016
  2. APREMILAST [Suspect]
     Active Substance: APREMILAST
     Indication: Behcet^s syndrome
     Dosage: 20 MILLIGRAM, QD
     Route: 048
     Dates: start: 20211017
  3. APREMILAST [Suspect]
     Active Substance: APREMILAST
     Dosage: 30 MILLIGRAM, QD
     Route: 048
     Dates: start: 20211018
  4. APREMILAST [Suspect]
     Active Substance: APREMILAST
     Dosage: 40 MILLIGRAM
     Route: 048
     Dates: start: 20211019
  5. APREMILAST [Suspect]
     Active Substance: APREMILAST
     Dosage: 50 MILLIGRAM, QD
     Route: 048
     Dates: start: 20211020
  6. APREMILAST [Suspect]
     Active Substance: APREMILAST
     Dosage: 60 MILLIGRAM, QD
     Route: 048
     Dates: start: 20211021
  7. DEXAMETHASONE [Concomitant]
     Active Substance: DEXAMETHASONE
     Indication: Mucosal ulceration
     Dosage: UNK
     Route: 048
  8. PREDNISOLONE [Concomitant]
     Active Substance: PREDNISOLONE
     Indication: Mucosal ulceration
     Dosage: 4 MILLIGRAM, QD
  9. PREDNISOLONE [Concomitant]
     Active Substance: PREDNISOLONE
     Indication: Cutaneous symptom
  10. PREDNISOLONE [Concomitant]
     Active Substance: PREDNISOLONE
     Indication: Genital ulceration
  11. PREDNISOLONE [Concomitant]
     Active Substance: PREDNISOLONE
     Indication: Arthritis
  12. COLCHICINE [Concomitant]
     Active Substance: COLCHICINE
     Indication: Mucosal ulceration
     Dosage: 0.5 MILLIGRAM, QD
     Route: 048
  13. COLCHICINE [Concomitant]
     Active Substance: COLCHICINE
     Indication: Cutaneous symptom
  14. COLCHICINE [Concomitant]
     Active Substance: COLCHICINE
     Indication: Genital ulceration
  15. COLCHICINE [Concomitant]
     Active Substance: COLCHICINE
     Indication: Musculoskeletal stiffness
  16. CELECOXIB [Concomitant]
     Active Substance: CELECOXIB
     Indication: Arthritis
     Dosage: 200 MILLIGRAM, QD
     Route: 048
  17. CELECOXIB [Concomitant]
     Active Substance: CELECOXIB
     Indication: Deformity
  18. CELECOXIB [Concomitant]
     Active Substance: CELECOXIB
     Indication: Musculoskeletal stiffness

REACTIONS (2)
  - Gastritis erosive [Recovering/Resolving]
  - Diarrhoea [Recovering/Resolving]

NARRATIVE: CASE EVENT DATE: 20211021
